FAERS Safety Report 16728232 (Version 1)
Quarter: 2019Q3

REPORT INFORMATION
  Report Type: Spontaneous
  Country: BR (occurrence: BR)
  Receive Date: 20190822
  Receipt Date: 20190822
  Transmission Date: 20191005
  Serious: Yes (Other)
  Sender: FDA-Public Use
  Company Number: BR-B.I. PHARMACEUTICALS,INC./RIDGEFIELD-2019-MI-000857

PATIENT
  Sex: Female
  Weight: 71 kg

DRUGS (3)
  1. MICARDIS [Suspect]
     Active Substance: TELMISARTAN
     Indication: HYPERTENSION
     Dosage: MICARDIS 80 MG 1 TABLET ONCE DAILY
     Route: 048
  2. ZOLPIDEM [Concomitant]
     Active Substance: ZOLPIDEM TARTRATE
     Indication: HYPERTENSION
     Dosage: ZOLPIDEM 10MG 1 TABLET ONCE DAILY
     Route: 065
  3. INDAPEN [Concomitant]
     Active Substance: INDAPAMIDE
     Indication: HYPERTENSION
     Dosage: INDAPEN 1, 5MG
     Route: 048

REACTIONS (2)
  - Gastrointestinal carcinoma [Recovered/Resolved]
  - Insomnia [Not Recovered/Not Resolved]
